FAERS Safety Report 17745490 (Version 1)
Quarter: 2020Q2

REPORT INFORMATION
  Report Type: Spontaneous
  Country: CA (occurrence: CA)
  Receive Date: 20200505
  Receipt Date: 20200505
  Transmission Date: 20200714
  Serious: Yes (Death, Hospitalization)
  Sender: FDA-Public Use
  Company Number: CA-TEVA-2020-CA-1231116

PATIENT
  Age: 59 Year
  Sex: Female

DRUGS (9)
  1. DILAUDID [Concomitant]
     Active Substance: HYDROMORPHONE HYDROCHLORIDE
  2. HALOPERIDOL. [Concomitant]
     Active Substance: HALOPERIDOL
  3. ROSUVASTATIN. [Suspect]
     Active Substance: ROSUVASTATIN
     Indication: CORONARY ARTERY DISEASE
  4. GLYCOPYRROLATE INJECTION USP [Concomitant]
     Active Substance: GLYCOPYRRONIUM
  5. LATANOPROST. [Concomitant]
     Active Substance: LATANOPROST
  6. LORAZEPAM. [Concomitant]
     Active Substance: LORAZEPAM
  7. ROSUVASTATIN. [Suspect]
     Active Substance: ROSUVASTATIN
     Indication: STENT PLACEMENT
     Route: 048
  8. BRIMONIDINE OPHTHALMIC [Concomitant]
  9. NOZINAN [Concomitant]
     Active Substance: LEVOMEPROMAZINE

REACTIONS (2)
  - Muscular weakness [Fatal]
  - Blood creatine phosphokinase increased [Fatal]
